FAERS Safety Report 15312097 (Version 1)
Quarter: 2018Q3

REPORT INFORMATION
  Report Type: Spontaneous
  Country: TH (occurrence: TH)
  Receive Date: 20180823
  Receipt Date: 20180823
  Transmission Date: 20181010
  Serious: Yes (Hospitalization)
  Sender: FDA-Public Use
  Company Number: TH-OTSUKA-2018_028872

PATIENT
  Age: 60 Year
  Sex: Male
  Weight: 61 kg

DRUGS (2)
  1. BUSULFEX [Suspect]
     Active Substance: BUSULFAN
     Indication: MYELODYSPLASTIC SYNDROME
     Dosage: 48 MG, QID (EVERY 6 HOURS FOR 4 DAYS)
     Route: 042
     Dates: start: 20150212, end: 20150215
  2. BUSULFEX [Suspect]
     Active Substance: BUSULFAN
     Indication: ALLOGENIC BONE MARROW TRANSPLANTATION THERAPY

REACTIONS (7)
  - Cytomegalovirus infection [Recovered/Resolved]
  - Mucosal inflammation [Recovered/Resolved]
  - Product use in unapproved indication [Unknown]
  - Papilloma viral infection [Recovered/Resolved]
  - Pharyngitis [Recovered/Resolved]
  - Diarrhoea infectious [Recovered/Resolved]
  - Febrile neutropenia [Recovered/Resolved]
